FAERS Safety Report 5530977-2 (Version None)
Quarter: 2007Q4

REPORT INFORMATION
  Report Type: 
  Country: None (occurrence: None)
  Receive Date: 20071130
  Receipt Date: 20071119
  Transmission Date: 20080405
  Serious: Yes (Other)
  Sender: FDA-Public Use
  Company Number: US-PFIZER INC-2007097975

PATIENT
  Sex: Female
  Weight: 50 kg

DRUGS (5)
  1. DILANTIN [Suspect]
     Indication: PETIT MAL EPILEPSY
     Route: 048
  2. GRAPEFRUIT JUICE [Suspect]
  3. DIAZEPAM [Concomitant]
  4. FUROSEMIDE [Concomitant]
  5. ALL OTHER THERAPEUTIC PRODUCTS [Concomitant]

REACTIONS (5)
  - FATIGUE [None]
  - GRAND MAL CONVULSION [None]
  - PETIT MAL EPILEPSY [None]
  - RETINAL DISORDER [None]
  - VISION BLURRED [None]
